FAERS Safety Report 11728609 (Version 2)
Quarter: 2016Q4

REPORT INFORMATION
  Report Type: Spontaneous
  Country: US (occurrence: US)
  Receive Date: 20151112
  Receipt Date: 20161024
  Transmission Date: 20170206
  Serious: Yes (Other)
  Sender: FDA-Public Use
  Company Number: US-ELI_LILLY_AND_COMPANY-US201511001072

PATIENT
  Age: 52 Year
  Sex: Male

DRUGS (2)
  1. CYMBALTA [Suspect]
     Active Substance: DULOXETINE HYDROCHLORIDE
     Indication: PAIN
  2. CYMBALTA [Suspect]
     Active Substance: DULOXETINE HYDROCHLORIDE
     Indication: DEPRESSION
     Dosage: UNK, UNKNOWN
     Route: 065
     Dates: start: 2011, end: 20141208

REACTIONS (29)
  - Balance disorder [Unknown]
  - Abasia [Unknown]
  - Insomnia [Recovering/Resolving]
  - Irritability [Recovering/Resolving]
  - Disturbance in attention [Unknown]
  - Intentional self-injury [Unknown]
  - Vertigo [Unknown]
  - Headache [Recovering/Resolving]
  - Photophobia [Unknown]
  - Seizure [Unknown]
  - Hallucination [Unknown]
  - Drug withdrawal syndrome [Unknown]
  - Memory impairment [Unknown]
  - Vomiting [Unknown]
  - Confusional state [Unknown]
  - Influenza like illness [Unknown]
  - Tremor [Unknown]
  - Diarrhoea [Unknown]
  - Paraesthesia [Unknown]
  - Weight bearing difficulty [Unknown]
  - Suicidal ideation [Unknown]
  - Dizziness [Unknown]
  - Fatigue [Unknown]
  - Nightmare [Unknown]
  - Migraine [Unknown]
  - Nausea [Unknown]
  - Hyperhidrosis [Unknown]
  - Sensory disturbance [Unknown]
  - Aggression [Unknown]

NARRATIVE: CASE EVENT DATE: 20141208
